FAERS Safety Report 9838997 (Version 2)
Quarter: 2014Q1

REPORT INFORMATION
  Report Type: Report from Study
  Country: US (occurrence: US)
  Receive Date: 20140123
  Receipt Date: 20140205
  Transmission Date: 20141002
  Serious: Yes (Hospitalization)
  Sender: FDA-Public Use
  Company Number: US-US-EMD SERONO, INC.-7264442

PATIENT
  Age: 24 Year
  Sex: Male

DRUGS (3)
  1. REBIF [Suspect]
     Indication: MULTIPLE SCLEROSIS
     Route: 058
     Dates: start: 20131024
  2. REBIF [Suspect]
     Route: 058
     Dates: end: 201312
  3. REBIF [Suspect]
     Route: 058
     Dates: start: 201401

REACTIONS (4)
  - Viral infection [Recovering/Resolving]
  - Dehydration [Recovering/Resolving]
  - Blood pressure increased [Recovering/Resolving]
  - Multiple sclerosis relapse [Recovering/Resolving]
